FAERS Safety Report 6305464-4 (Version None)
Quarter: 2009Q3

REPORT INFORMATION
  Report Type: 
  Country: None (occurrence: None)
  Receive Date: 20090811
  Receipt Date: 20090724
  Transmission Date: 20100115
  Serious: Yes (Hospitalization)
  Sender: FDA-Public Use
  Company Number: PHHY2009DE32626

PATIENT
  Age: 82 Year
  Sex: Female

DRUGS (7)
  1. METOPROLOL [Suspect]
     Indication: INTENTIONAL OVERDOSE
     Dosage: 10 TABLETS OF 50MG
     Route: 048
     Dates: start: 20090713, end: 20090713
  2. OLMETEC [Suspect]
     Indication: INTENTIONAL OVERDOSE
     Dosage: 10 TABLETS OF 10MG
     Route: 048
     Dates: start: 20090713, end: 20090713
  3. SOLVEX [Suspect]
     Indication: INTENTIONAL OVERDOSE
     Dosage: 5 TABLETS OF 4MG
     Route: 048
     Dates: start: 20090713, end: 20090713
  4. ENALAPRIL/HCT [Suspect]
     Indication: INTENTIONAL OVERDOSE
     Dosage: 5 TABLETS OF 10/25MG
     Route: 048
     Dates: start: 20090713, end: 20090713
  5. ISOSORBIDE MONONITRATE [Suspect]
     Indication: INTENTIONAL OVERDOSE
     Dosage: 5 TABLETS
     Route: 048
     Dates: start: 20090713, end: 20090713
  6. MOLSIDOMIN ^HEUMANN^ [Suspect]
     Indication: INTENTIONAL OVERDOSE
     Dosage: 5 TABLETS OF 8MG
     Route: 048
     Dates: start: 20090713, end: 20090713
  7. TEBONIN [Suspect]
     Indication: INTENTIONAL OVERDOSE
     Dosage: 15 TABLETS OF 40MG
     Route: 048
     Dates: start: 20090713, end: 20090713

REACTIONS (4)
  - ATRIOVENTRICULAR BLOCK FIRST DEGREE [None]
  - BRADYCARDIA [None]
  - INTENTIONAL OVERDOSE [None]
  - SUICIDE ATTEMPT [None]
